FAERS Safety Report 18761047 (Version 2)
Quarter: 2021Q1

REPORT INFORMATION
  Report Type: Report from Study
  Country: FR (occurrence: FR)
  Receive Date: 20210120
  Receipt Date: 20210128
  Transmission Date: 20210419
  Serious: Yes (Hospitalization)
  Sender: FDA-Public Use
  Company Number: FR-ROCHE-2749157

PATIENT
  Age: 52 Year
  Sex: Male
  Weight: 77 kg

DRUGS (9)
  1. PAROEX [Concomitant]
     Active Substance: CHLORHEXIDINE GLUCONATE
     Route: 048
     Dates: start: 20200904
  2. ENTRECTINIB [Suspect]
     Active Substance: ENTRECTINIB
     Indication: LUNG NEOPLASM MALIGNANT
     Dosage: THE MOST RECENT DOSE (400 MG) OF ENTRECTINIB PRIOR TO AE/SAE ? 12/JAN/2021
     Route: 048
     Dates: start: 20190218
  3. TELMISARTAN. [Concomitant]
     Active Substance: TELMISARTAN
     Indication: HYPERTENSION
     Route: 048
     Dates: start: 201601
  4. MOVICOL [Concomitant]
     Active Substance: POLYETHYLENE GLYCOL 3350\POTASSIUM CHLORIDE\SODIUM BICARBONATE\SODIUM CHLORIDE
     Indication: CONSTIPATION
     Dosage: 3 OTHER
     Route: 048
     Dates: start: 20190304
  5. SPASFON LYOC [Concomitant]
     Active Substance: PHLOROGLUCINOL
     Indication: ABDOMINAL PAIN
     Route: 048
     Dates: start: 20190304
  6. IMODIUM [Concomitant]
     Active Substance: LOPERAMIDE HYDROCHLORIDE
     Indication: DIARRHOEA
     Dosage: 1 OTHER
     Route: 048
     Dates: start: 20190304
  7. NORMACOL [Concomitant]
     Active Substance: HERBALS\KARAYA GUM
     Indication: CONSTIPATION
     Dosage: 1 OTHER
     Route: 065
     Dates: start: 20190304
  8. PARACETAMOL [Concomitant]
     Active Substance: ACETAMINOPHEN
     Indication: PAIN
     Route: 048
     Dates: start: 20190304
  9. PRIMPERAN [Concomitant]
     Active Substance: METOCLOPRAMIDE HYDROCHLORIDE
     Indication: NAUSEA
     Route: 048
     Dates: start: 20190304

REACTIONS (1)
  - Pulmonary embolism [Not Recovered/Not Resolved]

NARRATIVE: CASE EVENT DATE: 20210112
